FAERS Safety Report 8898594 (Version 1)
Quarter: 2012Q4

REPORT INFORMATION
  Report Type: 
  Country: US (occurrence: US)
  Receive Date: 20121108
  Receipt Date: 20121108
  Transmission Date: 20130627
  Serious: No
  Sender: FDA-Public Use
  Company Number: US-AMGEN-USASP2012023751

PATIENT
  Age: 63 Year
  Sex: Female

DRUGS (2)
  1. ENBREL [Suspect]
     Indication: RHEUMATOID ARTHRITIS
     Dosage: 50 mg, qwk
     Dates: start: 20120118, end: 201202
  2. HUMIRA [Concomitant]
     Dosage: UNK

REACTIONS (2)
  - Injection site rash [Recovered/Resolved]
  - Laryngitis [Not Recovered/Not Resolved]
